FAERS Safety Report 15098304 (Version 6)
Quarter: 2018Q3

REPORT INFORMATION
  Report Type: Spontaneous
  Country: DE (occurrence: DE)
  Receive Date: 20180702
  Receipt Date: 20180906
  Transmission Date: 20181010
  Serious: Yes (Death, Congenital Anomaly)
  Sender: FDA-Public Use
  Company Number: PHHY2018DE018637

PATIENT

DRUGS (16)
  1. PANTOPRAZOLE [Concomitant]
     Active Substance: PANTOPRAZOLE
     Indication: FOETAL EXPOSURE DURING PREGNANCY
     Dosage: UNK
     Route: 064
  2. MORPHINE [Concomitant]
     Active Substance: MORPHINE
     Indication: FOETAL EXPOSURE DURING PREGNANCY
     Dosage: UNK
     Route: 064
  3. AMITRIPTYLINE [Concomitant]
     Active Substance: AMITRIPTYLINE
     Indication: FOETAL EXPOSURE DURING PREGNANCY
     Route: 064
  4. NICOTINE. [Concomitant]
     Active Substance: NICOTINE
     Indication: FOETAL EXPOSURE DURING PREGNANCY
     Dosage: UNK
     Route: 064
  5. ISOTRETINOIN. [Suspect]
     Active Substance: ISOTRETINOIN
     Indication: FOETAL EXPOSURE DURING PREGNANCY
     Dosage: IN THE FIRST TRIMESTER
     Route: 064
  6. ELETRIPTAN. [Suspect]
     Active Substance: ELETRIPTAN
     Indication: FOETAL EXPOSURE DURING PREGNANCY
     Dosage: IN THE THIRD WEEK OF GESTATION
     Route: 064
  7. ETHINYLESTRADIOL [Concomitant]
     Active Substance: ETHINYL ESTRADIOL
     Indication: FOETAL EXPOSURE DURING PREGNANCY
     Route: 064
  8. DICLOFENAC [Concomitant]
     Active Substance: DICLOFENAC
     Indication: FOETAL EXPOSURE DURING PREGNANCY
     Dosage: UNK
     Route: 064
  9. LEVONORGESTREL. [Concomitant]
     Active Substance: LEVONORGESTREL
     Indication: FOETAL EXPOSURE DURING PREGNANCY
     Dosage: UNK
     Route: 064
  10. DROSPIRENONE [Concomitant]
     Active Substance: DROSPIRENONE
     Indication: FOETAL EXPOSURE DURING PREGNANCY
     Dosage: UNK
     Route: 064
  11. ZOLMITRIPTAN. [Suspect]
     Active Substance: ZOLMITRIPTAN
     Indication: FOETAL EXPOSURE DURING PREGNANCY
     Dosage: UNK
     Route: 064
  12. METAMIZOLE [Concomitant]
     Active Substance: METAMIZOLE
     Indication: FOETAL EXPOSURE DURING PREGNANCY
     Dosage: UNK
     Route: 064
  13. SUMATRIPTAN. [Suspect]
     Active Substance: SUMATRIPTAN
     Indication: FOETAL EXPOSURE DURING PREGNANCY
     Dosage: UNK
     Route: 064
  14. ELETRIPTAN. [Suspect]
     Active Substance: ELETRIPTAN
     Indication: MIGRAINE
  15. METOCLOPRAMIDE. [Concomitant]
     Active Substance: METOCLOPRAMIDE
     Indication: FOETAL EXPOSURE DURING PREGNANCY
     Dosage: UNK
     Route: 064
  16. METOPROLOL. [Concomitant]
     Active Substance: METOPROLOL
     Indication: FOETAL EXPOSURE DURING PREGNANCY
     Dosage: UNK
     Route: 064

REACTIONS (7)
  - Cleft lip and palate [Fatal]
  - Foetal exposure during pregnancy [Fatal]
  - Foetal death [Fatal]
  - Atrial septal defect [Unknown]
  - Cataract congenital [Unknown]
  - Pulmonary artery stenosis congenital [Unknown]
  - Microphthalmos [Unknown]
